FAERS Safety Report 5496445-1 (Version None)
Quarter: 2007Q4

REPORT INFORMATION
  Report Type: 
  Country: None (occurrence: None)
  Receive Date: 20071023
  Receipt Date: 20071023
  Transmission Date: 20080405
  Serious: Yes (Other)
  Sender: FDA-Public Use
  Company Number: None

PATIENT
  Age: 78 Year
  Sex: Female
  Weight: 97.5234 kg

DRUGS (2)
  1. BONIVA [Suspect]
     Indication: OSTEOPENIA
     Dosage: 1 BONIVA IV 3 MONTH IN VEIN
     Route: 042
     Dates: start: 20070307
  2. BONIVA [Suspect]
     Indication: OSTEOPENIA
     Dosage: 1 BONIVA IV 3 MONTH IN VEIN
     Route: 042
     Dates: start: 20070606

REACTIONS (14)
  - ANOREXIA [None]
  - ANXIETY [None]
  - DRY MOUTH [None]
  - FATIGUE [None]
  - FEELING HOT [None]
  - FEELING JITTERY [None]
  - FREQUENT BOWEL MOVEMENTS [None]
  - HEADACHE [None]
  - IMPAIRED DRIVING ABILITY [None]
  - INSOMNIA [None]
  - MALAISE [None]
  - NASAL DRYNESS [None]
  - PAIN IN EXTREMITY [None]
  - STOMACH DISCOMFORT [None]
